FAERS Safety Report 9748164 (Version 1)
Quarter: 2013Q4

REPORT INFORMATION
  Report Type: Spontaneous
  Country: US (occurrence: US)
  Receive Date: 20131212
  Receipt Date: 20131212
  Transmission Date: 20140711
  Serious: No
  Sender: FDA-Public Use
  Company Number: US-PFIZER INC-2013352939

PATIENT
  Sex: 0

DRUGS (1)
  1. LYRICA [Suspect]
     Dosage: UNK

REACTIONS (10)
  - Tinnitus [Unknown]
  - Headache [Unknown]
  - Neck pain [Unknown]
  - Back pain [Unknown]
  - Pruritus generalised [Unknown]
  - Muscle twitching [Unknown]
  - Muscle spasms [Unknown]
  - Hypersensitivity [Unknown]
  - Burning sensation [Unknown]
  - Body temperature decreased [Unknown]
